FAERS Safety Report 6087195-1 (Version None)
Quarter: 2009Q1

REPORT INFORMATION
  Report Type: 
  Country: None (occurrence: None)
  Receive Date: 20090223
  Receipt Date: 20090211
  Transmission Date: 20090719
  Serious: Yes (Hospitalization, Other)
  Sender: FDA-Public Use
  Company Number: US-MERCK-0805USA00907

PATIENT
  Age: 71 Year
  Sex: Female

DRUGS (12)
  1. FOSAMAX [Suspect]
     Indication: OSTEOPOROSIS
     Route: 048
     Dates: start: 19960101, end: 20060101
  2. FOSAMAX [Suspect]
     Route: 048
     Dates: start: 20020811, end: 20030501
  3. CARTIA XT [Concomitant]
     Indication: CARDIAC DISORDER
     Route: 065
  4. CARTIA XT [Concomitant]
     Indication: DIABETES MELLITUS
     Route: 065
  5. LIPITOR [Concomitant]
     Indication: CARDIAC DISORDER
     Route: 065
  6. LIPITOR [Concomitant]
     Indication: DIABETES MELLITUS
     Route: 065
  7. PLAVIX [Concomitant]
     Indication: CARDIAC DISORDER
     Route: 065
  8. PLAVIX [Concomitant]
     Indication: DIABETES MELLITUS
     Route: 065
  9. EVISTA [Concomitant]
     Indication: CARDIAC DISORDER
     Route: 065
  10. EVISTA [Concomitant]
     Indication: DIABETES MELLITUS
     Route: 065
  11. GLYBURIDE [Concomitant]
     Indication: CARDIAC DISORDER
     Route: 065
  12. GLYBURIDE [Concomitant]
     Indication: DIABETES MELLITUS
     Route: 065

REACTIONS (9)
  - DIABETES MELLITUS INADEQUATE CONTROL [None]
  - JAW DISORDER [None]
  - OSTEOMYELITIS [None]
  - OSTEONECROSIS [None]
  - OVARIAN CANCER [None]
  - TOOTH ABSCESS [None]
  - TOOTH DISORDER [None]
  - TOOTH FRACTURE [None]
  - UTERINE DISORDER [None]
